FAERS Safety Report 19741743 (Version 1)
Quarter: 2021Q3

REPORT INFORMATION
  Report Type: Spontaneous
  Country: LV (occurrence: LV)
  Receive Date: 20210824
  Receipt Date: 20210824
  Transmission Date: 20211014
  Serious: Yes (Other)
  Sender: FDA-Public Use
  Company Number: LV-ABBVIE-21K-287-4052244-00

PATIENT
  Sex: Female

DRUGS (3)
  1. RITONAVIR. [Suspect]
     Active Substance: RITONAVIR
     Indication: HIV INFECTION
     Route: 048
     Dates: start: 201309, end: 202002
  2. ATAZANAVIR. [Interacting]
     Active Substance: ATAZANAVIR
     Indication: HIV INFECTION
     Route: 065
     Dates: start: 201309, end: 202002
  3. ABACAVIR SULFATE + LAMIVUDINE [Interacting]
     Active Substance: ABACAVIR SULFATE\LAMIVUDINE
     Indication: HIV INFECTION
     Dosage: UNK
     Route: 065
     Dates: start: 201309, end: 202002

REACTIONS (2)
  - Systemic lupus erythematosus [Unknown]
  - Drug interaction [Unknown]
